FAERS Safety Report 14123784 (Version 1)
Quarter: 2017Q4

REPORT INFORMATION
  Report Type: Spontaneous
  Country: US (occurrence: US)
  Receive Date: 20171025
  Receipt Date: 20171025
  Transmission Date: 20180321
  Serious: No
  Sender: FDA-Public Use
  Company Number: US-KERYX BIOPHARMACEUTICALS, INC.-2017US002864

PATIENT
  Age: 13 Year
  Sex: Female
  Weight: 50.7 kg

DRUGS (8)
  1. SEVELAMER [Concomitant]
     Active Substance: SEVELAMER
     Indication: PRODUCT USED FOR UNKNOWN INDICATION
     Dosage: 4 TAB, TID
  2. AURYXIA [Suspect]
     Active Substance: TETRAFERRIC TRICITRATE DECAHYDRATE
     Indication: HYPERPHOSPHATAEMIA
     Dosage: 1 G (1 TABLET), TID
     Dates: start: 20160108, end: 20160923
  3. IRON SULFATE [Concomitant]
     Active Substance: FERROUS SULFATE ANHYDROUS
     Dosage: 325 UNK, UNK
  4. SEVELAMER [Concomitant]
     Active Substance: SEVELAMER
     Dosage: 4 TAB, TID
  5. SEVELAMER [Concomitant]
     Active Substance: SEVELAMER
     Dosage: 4 TAB, TID
  6. SEVELAMER [Concomitant]
     Active Substance: SEVELAMER
     Dosage: 4 TAB, TID
  7. IRON SULFATE [Concomitant]
     Active Substance: FERROUS SULFATE ANHYDROUS
     Dosage: 325 UNK, UNK
  8. IRON SULFATE [Concomitant]
     Active Substance: FERROUS SULFATE ANHYDROUS
     Indication: PRODUCT USED FOR UNKNOWN INDICATION
     Dosage: 325 UNK, UNK

REACTIONS (1)
  - Drug administered to patient of inappropriate age [Unknown]

NARRATIVE: CASE EVENT DATE: 20160108
